FAERS Safety Report 11684798 (Version 1)
Quarter: 2015Q4

REPORT INFORMATION
  Report Type: Spontaneous
  Country: JP (occurrence: JP)
  Receive Date: 20151029
  Receipt Date: 20151029
  Transmission Date: 20160304
  Serious: Yes (Hospitalization)
  Sender: FDA-Public Use
  Company Number: PHJP2015JP007513

PATIENT
  Age: 47 Year
  Sex: Male

DRUGS (2)
  1. CLOZARIL [Suspect]
     Active Substance: CLOZAPINE
     Indication: SCHIZOPHRENIA
     Dosage: UNK
     Route: 048
     Dates: start: 20150219
  2. CLOZARIL [Suspect]
     Active Substance: CLOZAPINE
     Dosage: 275 MG, QD
     Route: 048
     Dates: end: 20150509

REACTIONS (3)
  - Agranulocytosis [Recovered/Resolved]
  - Nasopharyngitis [Unknown]
  - Pyrexia [Unknown]

NARRATIVE: CASE EVENT DATE: 20150510
